FAERS Safety Report 20673175 (Version 1)
Quarter: 2022Q2

REPORT INFORMATION
  Report Type: Spontaneous
  Country: US (occurrence: None)
  Receive Date: 20220403
  Receipt Date: 20220403
  Transmission Date: 20220720
  Serious: Yes (Hospitalization)
  Sender: FDA-Public Use
  Company Number: None

PATIENT
  Age: 73 Year
  Sex: Male

DRUGS (1)
  1. RIVAROXABAN [Suspect]
     Active Substance: RIVAROXABAN
     Indication: Deep vein thrombosis
     Dosage: 10 MG EVERY DAY PO
     Route: 048
     Dates: start: 20190219

REACTIONS (3)
  - Anaemia [None]
  - Gastrointestinal arteriovenous malformation [None]
  - Colon cancer [None]

NARRATIVE: CASE EVENT DATE: 20220323
